FAERS Safety Report 7377570-7 (Version None)
Quarter: 2011Q1

REPORT INFORMATION
  Report Type: 
  Country: None (occurrence: None)
  Receive Date: 20110328
  Receipt Date: 20110323
  Transmission Date: 20110831
  Serious: Yes (Other)
  Sender: FDA-Public Use
  Company Number: US-AMGEN-USASP2011015935

PATIENT
  Age: 75 Year
  Sex: Female

DRUGS (2)
  1. ZOCOR [Concomitant]
  2. PROLIA [Suspect]
     Indication: OSTEOPOROSIS POSTMENOPAUSAL
     Dates: start: 20100930

REACTIONS (2)
  - NEUROPATHY PERIPHERAL [None]
  - WHEELCHAIR USER [None]
